FAERS Safety Report 5237055-0 (Version None)
Quarter: 2007Q1

REPORT INFORMATION
  Report Type: 
  Country: None (occurrence: None)
  Receive Date: 20070213
  Receipt Date: 20061214
  Transmission Date: 20070707
  Serious: Yes (Death, Life-Threatening)
  Sender: FDA-Public Use
  Company Number: GB-NOVOPROD-259412

PATIENT

DRUGS (4)
  1. LEVEMIR [Suspect]
     Indication: DIABETES MELLITUS
     Route: 064
  2. FOLIC ACID [Concomitant]
  3. HUMALOG                            /00030501/ [Concomitant]
  4. SIMVASTATIN [Concomitant]

REACTIONS (1)
  - ANENCEPHALY [None]
